FAERS Safety Report 5992974-2 (Version None)
Quarter: 2008Q4

REPORT INFORMATION
  Report Type: 
  Country: None (occurrence: None)
  Receive Date: 20081210
  Receipt Date: 20081210
  Transmission Date: 20090506
  Serious: Yes (Life-Threatening, Hospitalization)
  Sender: FDA-Public Use
  Company Number: None

PATIENT
  Age: 56 Year
  Sex: Male
  Weight: 82.24 kg

DRUGS (1)
  1. MYCOPHENOLATE MOFETIL [Suspect]
     Indication: RENAL TRANSPLANT
     Dosage: 750 MG BID PO
     Route: 048
     Dates: start: 20000327, end: 20081112

REACTIONS (14)
  - ASTHENIA [None]
  - CYTOMEGALOVIRUS TEST [None]
  - DYSURIA [None]
  - FAILURE TO THRIVE [None]
  - HYPOPHAGIA [None]
  - METABOLIC ACIDOSIS [None]
  - MICTURITION URGENCY [None]
  - NAUSEA [None]
  - PANCYTOPENIA [None]
  - PNEUMONIA [None]
  - POLLAKIURIA [None]
  - RESIDUAL URINE [None]
  - SEPSIS [None]
  - TRANSPLANT REJECTION [None]
